FAERS Safety Report 9555302 (Version 6)
Quarter: 2015Q1

REPORT INFORMATION
  Report Type: Report from Study
  Country: US (occurrence: US)
  Receive Date: 20130926
  Receipt Date: 20150217
  Transmission Date: 20150721
  Serious: Yes (Life-Threatening, Hospitalization, Other)
  Sender: FDA-Public Use
  Company Number: US-ALEXION PHARMACEUTICALS INC.-A201302035

PATIENT

DRUGS (4)
  1. SOLIRIS [Suspect]
     Active Substance: ECULIZUMAB
     Dosage: 1200 MG, Q2W
     Route: 042
  2. SOLIRIS [Suspect]
     Active Substance: ECULIZUMAB
     Indication: HAEMOLYTIC URAEMIC SYNDROME
     Dosage: UNK
     Route: 042
  3. EXJADE [Suspect]
     Active Substance: DEFERASIROX
     Indication: PRODUCT USED FOR UNKNOWN INDICATION
     Route: 065
  4. SOLIRIS [Suspect]
     Active Substance: ECULIZUMAB
     Dosage: 900 MG, QW
     Route: 042
     Dates: start: 20130828

REACTIONS (12)
  - Blood pressure fluctuation [Unknown]
  - Haemolytic uraemic syndrome [Recovered/Resolved]
  - Haptoglobin decreased [Unknown]
  - Haemoglobin decreased [Unknown]
  - Chromaturia [Unknown]
  - Drug dose omission [Unknown]
  - Drug ineffective [Recovered/Resolved]
  - Blood creatinine increased [Unknown]
  - Blood lactate dehydrogenase increased [Unknown]
  - Malaise [Unknown]
  - Vomiting [Unknown]
  - Hospice care [Recovered/Resolved]

NARRATIVE: CASE EVENT DATE: 20130912
